FAERS Safety Report 8194101-2 (Version None)
Quarter: 2012Q1

REPORT INFORMATION
  Report Type: 
  Country: None (occurrence: None)
  Receive Date: 20120308
  Receipt Date: 20110215
  Transmission Date: 20120608
  Serious: Yes (Other)
  Sender: FDA-Public Use
  Company Number: DE-TEVA-266572GER

PATIENT
  Age: 62 Year
  Sex: Male

DRUGS (2)
  1. CYCLOSPORINE [Suspect]
     Dosage: 25 MILLIGRAM;
  2. PREDNISOLONE ACETATE [Suspect]
     Dosage: 10-40 MG/DAY

REACTIONS (6)
  - KERATITIS [None]
  - ULCERATIVE KERATITIS [None]
  - GRAFT DYSFUNCTION [None]
  - ORAL CANDIDIASIS [None]
  - EYE PENETRATION [None]
  - BLEPHARITIS [None]
